FAERS Safety Report 4745038-X (Version None)
Quarter: 2005Q3

REPORT INFORMATION
  Report Type: 
  Country: None (occurrence: None)
  Receive Date: 20050811
  Receipt Date: 20050727
  Transmission Date: 20060218
  Serious: Yes (Hospitalization)
  Sender: FDA-Public Use
  Company Number: 200507IM000348

PATIENT
  Age: 51 Year
  Sex: Male
  Weight: 77.1115 kg

DRUGS (2)
  1. INFERGEN [Suspect]
     Indication: HEPATITIS C
     Dosage: 15 UG, QD, SUBCUTANEOUS
     Route: 058
     Dates: start: 20040929, end: 20050628
  2. RIBAVIRIN [Concomitant]

REACTIONS (4)
  - AMNESIA [None]
  - ARTERIAL DISORDER [None]
  - CEREBROVASCULAR DISORDER [None]
  - TRANSIENT ISCHAEMIC ATTACK [None]
